FAERS Safety Report 7945138-7 (Version None)
Quarter: 2011Q4

REPORT INFORMATION
  Report Type: 
  Country: None (occurrence: None)
  Receive Date: 20111129
  Receipt Date: 20111129
  Transmission Date: 20120403
  Serious: Yes (Life-Threatening, Hospitalization, Disabling, Other)
  Sender: FDA-Public Use
  Company Number: None

PATIENT
  Sex: Female
  Weight: 77.11 kg

DRUGS (2)
  1. MIRAPEX ER [Concomitant]
     Dosage: 4.5
     Route: 048
  2. MIRAPEX [Suspect]
     Indication: PARKINSON'S DISEASE
     Dosage: 1.5-3.75
     Route: 048

REACTIONS (17)
  - FROSTBITE [None]
  - MUSCLE SPASMS [None]
  - HOT FLUSH [None]
  - ROAD TRAFFIC ACCIDENT [None]
  - WITHDRAWAL SYNDROME [None]
  - PALPITATIONS [None]
  - HYPERHIDROSIS [None]
  - SUICIDAL IDEATION [None]
  - MULTIPLE INJURIES [None]
  - PARKINSON'S DISEASE [None]
  - SLEEP ATTACKS [None]
  - FALL [None]
  - PAIN [None]
  - NIGHTMARE [None]
  - CELLULITIS [None]
  - HIP FRACTURE [None]
  - PYREXIA [None]
